FAERS Safety Report 6598007-1 (Version None)
Quarter: 2010Q1

REPORT INFORMATION
  Report Type: 
  Country: None (occurrence: None)
  Receive Date: 20100223
  Receipt Date: 20091229
  Transmission Date: 20100710
  Serious: No
  Sender: FDA-Public Use
  Company Number: US-ALLERGAN-0917763US

PATIENT
  Age: 42 Year

DRUGS (3)
  1. BOTOX COSMETIC [Suspect]
     Indication: SKIN WRINKLING
     Dosage: 16 UNITS, SINGLE
     Route: 030
     Dates: start: 20091224, end: 20091224
  2. AMBIEN [Concomitant]
  3. FORTAZ [Concomitant]

REACTIONS (3)
  - EYELID PTOSIS [None]
  - FACIAL PARESIS [None]
  - WRONG TECHNIQUE IN DRUG USAGE PROCESS [None]
